FAERS Safety Report 11106312 (Version 1)
Quarter: 2015Q2

REPORT INFORMATION
  Report Type: Spontaneous
  Country: US (occurrence: US)
  Receive Date: 20150512
  Receipt Date: 20150512
  Transmission Date: 20150821
  Serious: Yes (Other)
  Sender: FDA-Public Use
  Company Number: US-PFIZER INC-2015160073

PATIENT
  Sex: Female

DRUGS (1)
  1. FLAGYL [Suspect]
     Active Substance: METRONIDAZOLE\METRONIDAZOLE HYDROCHLORIDE
     Dosage: UNK

REACTIONS (7)
  - Toxicity to various agents [Unknown]
  - Bradyphrenia [Not Recovered/Not Resolved]
  - Nervous system disorder [Unknown]
  - Skin burning sensation [Not Recovered/Not Resolved]
  - Cerebrovascular accident [Unknown]
  - Dizziness [Not Recovered/Not Resolved]
  - Apparent death [Unknown]

NARRATIVE: CASE EVENT DATE: 2012
